FAERS Safety Report 17534301 (Version 2)
Quarter: 2020Q2

REPORT INFORMATION
  Report Type: Spontaneous
  Country: US (occurrence: US)
  Receive Date: 20200312
  Receipt Date: 20200428
  Transmission Date: 20200713
  Serious: Yes (Hospitalization)
  Sender: FDA-Public Use
  Company Number: US-TASMAN PHARMA, INC.-2020TSM00100

PATIENT
  Sex: Male
  Weight: 74.4 kg

DRUGS (3)
  1. CLOZAPINE. [Suspect]
     Active Substance: CLOZAPINE
     Dosage: 350 MG, 1X/DAY
     Route: 048
     Dates: start: 2020, end: 2020
  2. CLOZAPINE. [Suspect]
     Active Substance: CLOZAPINE
     Indication: PSYCHOTIC DISORDER
     Dosage: 50 MG, 1X/DAY
     Route: 048
     Dates: start: 20200229, end: 2020
  3. OMEGA 3 FATTY ACIDS [Concomitant]
     Active Substance: OMEGA-3 FATTY ACIDS

REACTIONS (2)
  - Schizoaffective disorder bipolar type [Unknown]
  - Treatment noncompliance [Recovered/Resolved]
